FAERS Safety Report 6631806-6 (Version None)
Quarter: 2010Q1

REPORT INFORMATION
  Report Type: 
  Country: None (occurrence: None)
  Receive Date: 20100312
  Receipt Date: 20100303
  Transmission Date: 20100710
  Serious: Yes (Other)
  Sender: FDA-Public Use
  Company Number: CA-JNJFOC-20100301630

PATIENT
  Sex: Female
  Weight: 45.4 kg

DRUGS (8)
  1. REMICADE [Suspect]
     Indication: CROHN'S DISEASE
     Dosage: 2ND DOSE
     Route: 042
  2. REMICADE [Suspect]
     Dosage: 3RD DOSE
     Route: 042
  3. REMICADE [Suspect]
     Dosage: FIRST DOSE
     Route: 042
  4. BENADRYL [Concomitant]
     Indication: PREMEDICATION
     Route: 042
  5. HYDROCORTISONE [Concomitant]
     Indication: PREMEDICATION
     Route: 042
  6. VITAMIN B-12 [Concomitant]
  7. IRON [Concomitant]
  8. PREDNISONE [Concomitant]

REACTIONS (9)
  - CHEST DISCOMFORT [None]
  - DYSPNOEA [None]
  - ERYTHEMA [None]
  - HEADACHE [None]
  - HEART RATE INCREASED [None]
  - HOT FLUSH [None]
  - INFUSION RELATED REACTION [None]
  - LACRIMATION INCREASED [None]
  - OXYGEN SATURATION DECREASED [None]
